FAERS Safety Report 4473772-8 (Version None)
Quarter: 2004Q3

REPORT INFORMATION
  Report Type: 
  Country: None (occurrence: None)
  Receive Date: 20040909
  Receipt Date: 20040518
  Transmission Date: 20050211
  Serious: No
  Sender: FDA-Public Use
  Company Number: A03200401594

PATIENT
  Age: 46 Year
  Sex: Male
  Weight: 94.3482 kg

DRUGS (15)
  1. ELOXATIN [Suspect]
     Indication: COLORECTAL CANCER
     Dosage: 85 MG/M2 OTHER - INTRAVENOUS NOS
     Route: 042
  2. ESKALITH [Suspect]
     Dosage: ORAL
     Route: 048
  3. FLUOROURACIL [Concomitant]
  4. LEUCOVORIN CALCIUM [Concomitant]
  5. DEXAMETHASONE [Concomitant]
  6. ALOXIPRIN [Concomitant]
  7. WARFARIN SODIUM [Concomitant]
  8. LIOTHYRONINE SODIUM [Concomitant]
  9. SIMVASTATIN [Concomitant]
  10. FERROUS SULFATE TAB [Concomitant]
  11. TOPIRMATE [Concomitant]
  12. LISINOPRIL [Concomitant]
  13. METOPROLOL SUCCINATE [Concomitant]
  14. RABEPRAZOLE SODIUM [Concomitant]
  15. AMLODIPINE BESYLATE [Concomitant]

REACTIONS (2)
  - DRUG INTERACTION [None]
  - DRUG LEVEL FLUCTUATING [None]
